FAERS Safety Report 8424177-6 (Version None)
Quarter: 2012Q2

REPORT INFORMATION
  Report Type: 
  Country: None (occurrence: None)
  Receive Date: 20120608
  Receipt Date: 20120330
  Transmission Date: 20120825
  Serious: No
  Sender: FDA-Public Use
  Company Number: US-ASTRAZENECA-2012SE11695

PATIENT
  Age: 69 Year
  Sex: Female

DRUGS (4)
  1. BROVANA [Suspect]
     Route: 065
  2. PULMICORT [Suspect]
     Route: 055
  3. PULMICORT [Suspect]
     Route: 055
  4. PULMICORT [Suspect]
     Route: 055

REACTIONS (4)
  - DYSPNOEA [None]
  - RESPIRATORY DISTRESS [None]
  - DRUG DOSE OMISSION [None]
  - ADVERSE EVENT [None]
